FAERS Safety Report 4877007-3 (Version None)
Quarter: 2005Q4

REPORT INFORMATION
  Report Type: 
  Country: None (occurrence: None)
  Receive Date: 20051206
  Receipt Date: 20050914
  Transmission Date: 20060501
  Serious: No
  Sender: FDA-Public Use
  Company Number: USA0509108223

PATIENT
  Age: 50 Year
  Sex: Male

DRUGS (6)
  1. CYMBALTA [Suspect]
     Indication: DEPRESSION
     Dosage: 60 MG
     Dates: start: 20050801
  2. VYTORIN [Concomitant]
  3. AMITRIPTYLINE HCL [Concomitant]
  4. LODINE [Concomitant]
  5. METHOTREXATE [Concomitant]
  6. HUMIRA (ADALIMUMAB) [Concomitant]

REACTIONS (2)
  - DRUG INTERACTION [None]
  - OEDEMA PERIPHERAL [None]
